FAERS Safety Report 9816402 (Version 1)
Quarter: 2014Q1

REPORT INFORMATION
  Report Type: Spontaneous
  Country: US (occurrence: US)
  Receive Date: 20140114
  Receipt Date: 20140114
  Transmission Date: 20141002
  Serious: No
  Sender: FDA-Public Use
  Company Number: US-TARO-2013P1004193

PATIENT
  Age: 42 Year
  Sex: Female
  Weight: 93.44 kg

DRUGS (2)
  1. DESOXIMETASONE CREAM USP 0.05% [Suspect]
     Indication: RASH
     Route: 061
     Dates: start: 201303, end: 201303
  2. CLARITIN [Concomitant]
     Dates: start: 201302

REACTIONS (3)
  - Application site pain [Recovered/Resolved]
  - Drug ineffective [Recovered/Resolved]
  - Product substitution issue [Unknown]
